FAERS Safety Report 15372945 (Version 1)
Quarter: 2018Q4

REPORT INFORMATION
  Report Type: Report from Study
  Country: IT (occurrence: IT)
  Receive Date: 20180912
  Receipt Date: 20180912
  Transmission Date: 20190204
  Serious: Yes (Other)
  Sender: FDA-Public Use
  Company Number: IT-ACCORD-071622

PATIENT

DRUGS (6)
  1. CARMUSTINE. [Suspect]
     Active Substance: CARMUSTINE
     Indication: NON-HODGKIN^S LYMPHOMA
     Dosage: ON DAY -6
  2. ETOPOSIDE. [Suspect]
     Active Substance: ETOPOSIDE
     Indication: NON-HODGKIN^S LYMPHOMA
     Dosage: ON DAY -5 TO DAY -2
  3. MELPHALAN. [Suspect]
     Active Substance: MELPHALAN
     Indication: NON-HODGKIN^S LYMPHOMA
     Dosage: ON DAY -1
  4. CYTARABINE/CYTARABINE HYDROCHLORIDE/CYTARABINE OCFOSFATE [Suspect]
     Active Substance: CYTARABINE
     Indication: NON-HODGKIN^S LYMPHOMA
     Dosage: TWICE A DAY ON DAY -5 TO DAY -2
  5. IBRITUMOMAB TIUXETAN [Suspect]
     Active Substance: IBRITUMOMAB TIUXETAN
     Indication: NON-HODGKIN^S LYMPHOMA
     Dosage: 0.4 MCI/KG ON?DAY -14
  6. RITUXIMAB. [Suspect]
     Active Substance: RITUXIMAB
     Indication: NON-HODGKIN^S LYMPHOMA

REACTIONS (1)
  - Refractory cytopenia with unilineage dysplasia [Unknown]
